FAERS Safety Report 22296906 (Version 1)
Quarter: 2023Q2

REPORT INFORMATION
  Report Type: Spontaneous
  Country: US (occurrence: US)
  Receive Date: 20230509
  Receipt Date: 20230509
  Transmission Date: 20230721
  Serious: No
  Sender: FDA-Public Use
  Company Number: US-BIOCON RESEARCH LIMITED-BCN-2023-000772

PATIENT
  Sex: Male
  Weight: 90.800 kg

DRUGS (1)
  1. EVEROLIMUS [Suspect]
     Active Substance: EVEROLIMUS
     Indication: Thymic carcinoma
     Route: 048

REACTIONS (3)
  - Accidental exposure to product packaging [Unknown]
  - Product use in unapproved indication [Unknown]
  - No adverse event [Unknown]
